FAERS Safety Report 9162288 (Version 1)
Quarter: 2013Q1

REPORT INFORMATION
  Report Type: Spontaneous
  Country: GB (occurrence: None)
  Receive Date: 20130215
  Receipt Date: 20130215
  Transmission Date: 20140127
  Serious: Yes (Hospitalization)
  Sender: FDA-Public Use
  Company Number: SYM-2013-00487

PATIENT
  Age: 72 Year
  Sex: Male

DRUGS (10)
  1. 5-FU [Suspect]
     Indication: COLORECTAL CANCER METASTATIC
     Dosage: EVERY OTHER WEEK, INTRAVENOUS BOLUS
     Route: 040
     Dates: start: 20120925, end: 20120925
  2. AFLIBERCEPT [Suspect]
     Indication: COLORECTAL CANCER METASTATIC
     Dosage: EVERY OTHER WEEK, INTRAVENOUS DRIP
     Route: 041
     Dates: start: 20120925, end: 20120925
  3. IRINOTECAN [Suspect]
     Indication: COLORECTAL CANCER METASTATIC
     Dosage: EVERY OTHER WEEK, INTRAVENOUS DRIP
     Route: 041
     Dates: start: 20120925, end: 20120925
  4. LEUCOVORIN [Suspect]
     Indication: COLORECTAL CANCER METASTATIC
     Dosage: EVERY OTHER WEEK, INTRAVENOUS DRIP
     Route: 041
     Dates: start: 20120925, end: 20120925
  5. HEPARIN GROUP (HEPARIN GROUP) [Concomitant]
  6. DIFFLAM (BENZODAMINE HYDROCHLORIDE) (BENZYNDAMINE HYDROCHLORIDE) [Concomitant]
  7. LOPERAMIDE (LOPERAMIDE) (LOPERAMIDE) [Concomitant]
  8. BETA BLOCKING AGENTS (BETA BLOCKING AGENTS) [Concomitant]
  9. DIURETICS (DIURETICS) [Concomitant]
  10. ANTIBIOTICS (ANTIBIOTICS) [Concomitant]

REACTIONS (4)
  - Diarrhoea [None]
  - Faeces discoloured [None]
  - Blood creatinine increased [None]
  - Blood urea increased [None]
